FAERS Safety Report 14038101 (Version 2)
Quarter: 2017Q4

REPORT INFORMATION
  Report Type: Spontaneous
  Country: AT (occurrence: AT)
  Receive Date: 20171004
  Receipt Date: 20171222
  Transmission Date: 20180321
  Serious: Yes (Life-Threatening, Hospitalization)
  Sender: FDA-Public Use
  Company Number: AT-ELI_LILLY_AND_COMPANY-AT201709011086

PATIENT
  Age: 53 Year
  Sex: Female
  Weight: 113 kg

DRUGS (17)
  1. LEPONEX [Suspect]
     Active Substance: CLOZAPINE
     Dosage: 275 MG, UNKNOWN
     Route: 065
     Dates: start: 20170430, end: 20170430
  2. LEPONEX [Suspect]
     Active Substance: CLOZAPINE
     Dosage: 300 MG, UNKNOWN
     Route: 065
     Dates: start: 20150501
  3. FRAGMIN [Concomitant]
     Active Substance: DALTEPARIN SODIUM
     Indication: PRODUCT USED FOR UNKNOWN INDICATION
     Dosage: 5000 IU, UNKNOWN
     Route: 065
     Dates: start: 20150429, end: 20150429
  4. ANTIFLAT [Concomitant]
     Indication: PRODUCT USED FOR UNKNOWN INDICATION
     Dosage: UNK UNK, UNKNOWN
     Route: 065
     Dates: start: 20140428, end: 20140428
  5. EUTHYROX [Concomitant]
     Active Substance: LEVOTHYROXINE SODIUM
     Indication: PRODUCT USED FOR UNKNOWN INDICATION
     Dosage: 50 UG, UNKNOWN
     Route: 065
  6. FRAGMIN [Concomitant]
     Active Substance: DALTEPARIN SODIUM
     Dosage: 10000 IU, UNKNOWN
     Route: 065
     Dates: start: 20150501, end: 20150501
  7. MEXALEN [Concomitant]
     Active Substance: ACETAMINOPHEN
     Indication: PRODUCT USED FOR UNKNOWN INDICATION
     Dosage: 500 MG, UNKNOWN
     Route: 065
  8. LEPONEX [Suspect]
     Active Substance: CLOZAPINE
     Dosage: 200 MG, UNKNOWN
     Route: 065
     Dates: start: 20150424, end: 20150426
  9. FRAGMIN [Concomitant]
     Active Substance: DALTEPARIN SODIUM
     Dosage: 20000 IU, UNKNOWN
     Route: 065
     Dates: start: 20150502
  10. INDERAL [Concomitant]
     Active Substance: PROPRANOLOL HYDROCHLORIDE
     Indication: PRODUCT USED FOR UNKNOWN INDICATION
     Dosage: 10 MG, UNKNOWN
     Route: 065
     Dates: start: 20150511, end: 20150511
  11. LEPONEX [Suspect]
     Active Substance: CLOZAPINE
     Indication: PRODUCT USED FOR UNKNOWN INDICATION
     Dosage: 100 MG, UNKNOWN
     Route: 065
     Dates: start: 2014, end: 20150423
  12. LEPONEX [Suspect]
     Active Substance: CLOZAPINE
     Dosage: 250 MG, UNKNOWN
     Route: 065
     Dates: start: 20170428, end: 20170429
  13. FRAGMIN [Concomitant]
     Active Substance: DALTEPARIN SODIUM
     Dosage: 15000 IU, UNKNOWN
     Route: 065
     Dates: start: 20150430, end: 20150430
  14. CALCIUM GLYCEROPHOSPHATE\CELLULOSE\POLYETHYLENE GLYCOL\SACCHARIN SODIUM\SODIUM HYDROXIDE\SODIUM LAURYL SULFATE\SODIUM MAGNESIUM SILICATE\SODIUM MONOFLUOROPHOSPHATE\SORBITOL\WATER [Concomitant]
     Active Substance: CALCIUM GLYCEROPHOSPHATE\POLYETHYLENE GLYCOLS\POWDERED CELLULOSE\SACCHARIN SODIUM DIHYDRATE\SODIUM HYDROXIDE\SODIUM LAURYL SULFATE\SODIUM MAGNESIUM SILICATE\SODIUM MONOFLUOROPHOSPHATE\SORBITOL\WATER
     Indication: PRODUCT USED FOR UNKNOWN INDICATION
     Dosage: UNK, UNKNOWN
     Route: 065
     Dates: start: 20150428, end: 20150428
  15. ANTIFLAT [Concomitant]
     Dosage: 500 MG, UNKNOWN
     Route: 065
     Dates: start: 20160504, end: 20160504
  16. CYMBALTA [Suspect]
     Active Substance: DULOXETINE HYDROCHLORIDE
     Indication: PRODUCT USED FOR UNKNOWN INDICATION
     Dosage: 60 MG, UNKNOWN
     Route: 065
     Dates: start: 2014, end: 20150427
  17. LEPONEX [Suspect]
     Active Substance: CLOZAPINE
     Dosage: 225 MG, UNKNOWN
     Route: 065
     Dates: start: 20150427, end: 20150427

REACTIONS (4)
  - Antipsychotic drug level below therapeutic [Unknown]
  - Schizophrenia [Unknown]
  - Pulmonary embolism [Unknown]
  - Electroencephalogram abnormal [Unknown]

NARRATIVE: CASE EVENT DATE: 20150427
